FAERS Safety Report 5345359-6 (Version None)
Quarter: 2007Q2

REPORT INFORMATION
  Report Type: 
  Country: None (occurrence: None)
  Receive Date: 20070605
  Receipt Date: 20070529
  Transmission Date: 20071010
  Serious: Yes (Hospitalization)
  Sender: FDA-Public Use
  Company Number: PHRM2007FR01077

PATIENT
  Age: 63 Year
  Sex: Female
  Weight: 62 kg

DRUGS (2)
  1. TAMOXIFEN CITRATE [Suspect]
     Route: 048
     Dates: end: 20060731
  2. COTAREG [Suspect]
     Indication: HYPERTENSION
     Dosage: 1 DF, QD
     Route: 048

REACTIONS (8)
  - CORTISOL FREE URINE DECREASED [None]
  - DYSPNOEA EXERTIONAL [None]
  - GAIT DISTURBANCE [None]
  - HYPERTRIGLYCERIDAEMIA [None]
  - LIPOMA [None]
  - LIPOMA EXCISION [None]
  - MOBILITY DECREASED [None]
  - WEIGHT INCREASED [None]
